FAERS Safety Report 15566791 (Version 1)
Quarter: 2018Q4

REPORT INFORMATION
  Report Type: Spontaneous
  Country: NO (occurrence: NO)
  Receive Date: 20181030
  Receipt Date: 20181030
  Transmission Date: 20190205
  Serious: Yes (Other)
  Sender: FDA-Public Use
  Company Number: NO-PFIZER INC-2018434731

PATIENT
  Age: 48 Year
  Sex: Female

DRUGS (5)
  1. RIBOCICLIB. [Suspect]
     Active Substance: RIBOCICLIB
     Indication: BREAST CANCER METASTATIC
     Dosage: 400 MG, UNK
     Dates: start: 20180219, end: 20180918
  2. TRIOBE [Concomitant]
     Dosage: 1 DF, 1X/DAY
     Route: 048
  3. FEMAR [Concomitant]
     Active Substance: LETROZOLE
     Indication: BREAST CANCER METASTATIC
     Dosage: DOSING 2.5 MG, NOT FURTHER SPECIFIED
     Route: 048
  4. LEVAXIN [Concomitant]
     Active Substance: LEVOTHYROXINE SODIUM
     Dosage: DOSING 125 MICROGRAM, NOT FURTHER SPECIFIED
     Route: 048
  5. SERTRALINE HCL [Suspect]
     Active Substance: SERTRALINE HYDROCHLORIDE
     Indication: DEPRESSION
     Dosage: 50 MG, UNK
     Dates: start: 20180727

REACTIONS (4)
  - Neutrophil count decreased [Recovering/Resolving]
  - Hepatotoxicity [Recovering/Resolving]
  - Hepatic steatosis [Recovering/Resolving]
  - White blood cell count decreased [Recovered/Resolved]

NARRATIVE: CASE EVENT DATE: 2018
